FAERS Safety Report 7296304-8 (Version None)
Quarter: 2011Q1

REPORT INFORMATION
  Report Type: 
  Country: None (occurrence: None)
  Receive Date: 20110216
  Receipt Date: 20110208
  Transmission Date: 20110831
  Serious: Yes (Other)
  Sender: FDA-Public Use
  Company Number: PE-JNJFOC-20090600533

PATIENT
  Age: 48 Year
  Sex: Male

DRUGS (4)
  1. REMICADE [Suspect]
     Indication: ANKYLOSING SPONDYLITIS
     Dosage: 100 MG/VIAL
     Route: 042
  2. REMICADE [Suspect]
     Route: 042
  3. REMICADE [Suspect]
     Route: 042
  4. UNSPECIFED MEDICATIONS [Concomitant]
     Indication: PREMEDICATION
     Route: 065

REACTIONS (7)
  - INFUSION RELATED REACTION [None]
  - HEADACHE [None]
  - VISION BLURRED [None]
  - DISCOMFORT [None]
  - DYSPNOEA [None]
  - NAUSEA [None]
  - ERYTHEMA [None]
